FAERS Safety Report 16070610 (Version 1)
Quarter: 2019Q2

REPORT INFORMATION
  Report Type: Spontaneous
  Country: US (occurrence: US)
  Receive Date: 20190313
  Receipt Date: 20190313
  Transmission Date: 20190711
  Serious: Yes (Disabling, Other)
  Sender: FDA-Public Use
  Company Number: None

PATIENT
  Age: 34 Year
  Sex: Female
  Weight: 127.8 kg

DRUGS (11)
  1. AIMOVIG [Suspect]
     Active Substance: ERENUMAB-AOOE
     Indication: MIGRAINE
     Dosage: ?          QUANTITY:2 INJECTION(S);OTHER FREQUENCY:ONCE MONTHLY;OTHER ROUTE:INJECTED INTO ABDOMEN?
     Dates: start: 20181028, end: 20181128
  2. FLORICET [Concomitant]
  3. BCOMPLES [Concomitant]
  4. CBD [Concomitant]
     Active Substance: CANNABIDIOL
  5. BACLOFEN. [Concomitant]
     Active Substance: BACLOFEN
  6. L0-OVERAL [Concomitant]
  7. LEXAPRO [Concomitant]
     Active Substance: ESCITALOPRAM OXALATE
  8. ALLEGRA [Concomitant]
     Active Substance: FEXOFENADINE HYDROCHLORIDE
  9. MAGNESIUM [Concomitant]
     Active Substance: MAGNESIUM
  10. TOPAMAX [Concomitant]
     Active Substance: TOPIRAMATE
  11. VITAMIND [Concomitant]

REACTIONS (4)
  - Alopecia [None]
  - Menorrhagia [None]
  - Dysmenorrhoea [None]
  - Adnexa uteri pain [None]

NARRATIVE: CASE EVENT DATE: 20181128
